FAERS Safety Report 9053552 (Version 1)
Quarter: 2013Q1

REPORT INFORMATION
  Report Type: Spontaneous
  Country: US (occurrence: None)
  Receive Date: 20130117
  Receipt Date: 20130117
  Transmission Date: 20140127
  Serious: Yes (Hospitalization, Other)
  Sender: FDA-Public Use
  Company Number: 2013SP000190

PATIENT
  Age: 67 Year
  Sex: Male

DRUGS (8)
  1. VANCOMYCIN [Suspect]
     Indication: OSTEOMYELITIS
  2. ZOSYN [Suspect]
     Indication: OSTEOMYELITIS
  3. SAXAGLIPTIN [Concomitant]
  4. METFORMIN HYDROCHLORIDE [Concomitant]
  5. NOVOLOG [Concomitant]
  6. NIACIN [Concomitant]
  7. LAXIS [Concomitant]
  8. LISINOPRIL [Concomitant]

REACTIONS (8)
  - Peripheral arterial occlusive disease [None]
  - Glomerulosclerosis [None]
  - Renal failure [None]
  - Ventricular hypertrophy [None]
  - Toe amputation [None]
  - Postoperative wound infection [None]
  - Klebsiella infection [None]
  - Escherichia infection [None]
